FAERS Safety Report 19065434 (Version 1)
Quarter: 2021Q1

REPORT INFORMATION
  Report Type: Spontaneous
  Country: NL (occurrence: US)
  Receive Date: 20210327
  Receipt Date: 20210327
  Transmission Date: 20210420
  Serious: Yes (Hospitalization, Other)
  Sender: FDA-Public Use
  Company Number: NL-009507513-2103USA006554

PATIENT
  Age: 75 Year
  Sex: Female
  Weight: 78 kg

DRUGS (9)
  1. DECADRON [Suspect]
     Active Substance: DEXAMETHASONE
     Indication: GLIOBLASTOMA MULTIFORME
     Dosage: UNK
     Route: 048
     Dates: start: 20210106
  2. SUNITINIB MALATE. [Suspect]
     Active Substance: SUNITINIB MALATE
     Indication: GLIOBLASTOMA MULTIFORME
     Dosage: 700 MILLIGRAM, ONCE EVERY TWO WEEKS
     Route: 065
     Dates: start: 20210218
  3. AMLODIPINE [Concomitant]
     Active Substance: AMLODIPINE BESYLATE
     Indication: HYPERTENSION
     Dosage: UNK
     Dates: start: 202002
  4. PANTOPRAZOLE [Concomitant]
     Active Substance: PANTOPRAZOLE
     Indication: GASTROOESOPHAGEAL REFLUX DISEASE
     Dosage: UNK
     Dates: start: 20200826
  5. METOCLOPRAMIDE. [Concomitant]
     Active Substance: METOCLOPRAMIDE
     Indication: PROPHYLAXIS
     Dosage: UNK
     Dates: start: 202003
  6. ATORVASTATIN [Concomitant]
     Active Substance: ATORVASTATIN
     Indication: HYPERCHOLESTEROLAEMIA
     Dosage: UNK
     Dates: start: 202002
  7. CHOLECALCIFEROL [Concomitant]
     Active Substance: CHOLECALCIFEROL
     Indication: OSTEOPOROSIS
     Dosage: UNK
     Dates: start: 202002
  8. ENALAPRIL MALEATE. [Concomitant]
     Active Substance: ENALAPRIL MALEATE
     Indication: HYPERTENSION
     Dosage: UNK
     Dates: start: 202002
  9. ONDANSETRON [Concomitant]
     Active Substance: ONDANSETRON
     Indication: PROPHYLAXIS
     Dosage: UNK
     Dates: start: 20200310

REACTIONS (18)
  - Urinary tract infection [Unknown]
  - Oxygen saturation abnormal [Unknown]
  - Respiratory failure [Unknown]
  - Malaise [Unknown]
  - General physical health deterioration [Unknown]
  - Hypotension [Unknown]
  - Hypophagia [Unknown]
  - Jaundice [Unknown]
  - Pyrexia [Unknown]
  - Renal impairment [Unknown]
  - Apathy [Unknown]
  - Cough [Unknown]
  - Tubulointerstitial nephritis [Unknown]
  - Adrenal insufficiency [Unknown]
  - Magnetic resonance imaging brain abnormal [Unknown]
  - Constipation [Unknown]
  - Asthenia [Unknown]
  - Dyspnoea [Unknown]

NARRATIVE: CASE EVENT DATE: 20210201
